FAERS Safety Report 6425022-0 (Version None)
Quarter: 2009Q4

REPORT INFORMATION
  Report Type: 
  Country: None (occurrence: None)
  Receive Date: 20091030
  Receipt Date: 20091030
  Transmission Date: 20100525
  Serious: Yes (Disabling)
  Sender: FDA-Public Use
  Company Number: None

PATIENT
  Age: 48 Year
  Sex: Male
  Weight: 58.9676 kg

DRUGS (1)
  1. PREDNISONE TAB [Suspect]
     Indication: PEMPHIGUS
     Dosage: VARIED
     Dates: start: 20060301, end: 20071101

REACTIONS (9)
  - ASTHENIA [None]
  - DRY MOUTH [None]
  - DYSSTASIA [None]
  - FATIGUE [None]
  - HYPERHIDROSIS [None]
  - INSOMNIA [None]
  - LIP DRY [None]
  - OSTEOPOROSIS [None]
  - VISION BLURRED [None]
